FAERS Safety Report 25013464 (Version 1)
Quarter: 2025Q1

REPORT INFORMATION
  Report Type: Spontaneous
  Country: US (occurrence: US)
  Receive Date: 20250226
  Receipt Date: 20250226
  Transmission Date: 20250408
  Serious: No
  Sender: UCB
  Company Number: US-UCBSA-2024031989

PATIENT
  Age: 38 Month
  Sex: Female

DRUGS (13)
  1. LEVETIRACETAM [Suspect]
     Active Substance: LEVETIRACETAM
     Indication: Partial seizures
  2. LEVETIRACETAM [Suspect]
     Active Substance: LEVETIRACETAM
     Indication: Infantile spasms
  3. LEVETIRACETAM [Suspect]
     Active Substance: LEVETIRACETAM
     Indication: Epilepsy
  4. LEVETIRACETAM [Suspect]
     Active Substance: LEVETIRACETAM
     Indication: Gene mutation
  5. LEVETIRACETAM [Suspect]
     Active Substance: LEVETIRACETAM
     Indication: Off label use
  6. LORAZEPAM [Suspect]
     Active Substance: LORAZEPAM
     Indication: Partial seizures
     Dosage: 0.1 MILLIGRAM/KILOGRAM, 3X/DAY (TID)
  7. LORAZEPAM [Suspect]
     Active Substance: LORAZEPAM
     Indication: Infantile spasms
  8. LORAZEPAM [Suspect]
     Active Substance: LORAZEPAM
     Indication: Epilepsy
  9. LORAZEPAM [Suspect]
     Active Substance: LORAZEPAM
     Indication: Gene mutation
  10. PHENOBARBITAL [Suspect]
     Active Substance: PHENOBARBITAL
     Indication: Partial seizures
  11. PHENOBARBITAL [Suspect]
     Active Substance: PHENOBARBITAL
     Indication: Infantile spasms
  12. PHENOBARBITAL [Suspect]
     Active Substance: PHENOBARBITAL
     Indication: Epilepsy
  13. PHENOBARBITAL [Suspect]
     Active Substance: PHENOBARBITAL
     Indication: Gene mutation

REACTIONS (2)
  - Multiple-drug resistance [Unknown]
  - Off label use [Unknown]
